FAERS Safety Report 21187190 (Version 2)
Quarter: 2023Q2

REPORT INFORMATION
  Report Type: Report from Study
  Country: DE (occurrence: DE)
  Receive Date: 20220808
  Receipt Date: 20230626
  Transmission Date: 20230721
  Serious: Yes (Hospitalization, Other)
  Sender: FDA-Public Use
  Company Number: DE-ABBVIE-22K-062-4495989-00

PATIENT
  Age: 56 Year
  Sex: Male
  Weight: 85 kg

DRUGS (1)
  1. SKYRIZI [Suspect]
     Active Substance: RISANKIZUMAB-RZAA
     Indication: Psoriasis
     Route: 058
     Dates: start: 20220322

REACTIONS (12)
  - Spinal compression fracture [Recovered/Resolved]
  - Tibia fracture [Recovered/Resolved]
  - Fall [Unknown]
  - Pancreatitis necrotising [Not Recovered/Not Resolved]
  - Alcoholic pancreatitis [Not Recovered/Not Resolved]
  - Atelectasis [Not Recovered/Not Resolved]
  - Cardiac failure [Recovered/Resolved]
  - Hypokalaemia [Not Recovered/Not Resolved]
  - Alcohol withdrawal syndrome [Not Recovered/Not Resolved]
  - Peritonitis [Not Recovered/Not Resolved]
  - Portosplenomesenteric venous thrombosis [Not Recovered/Not Resolved]
  - Pleural effusion [Not Recovered/Not Resolved]

NARRATIVE: CASE EVENT DATE: 20220603
